FAERS Safety Report 21754827 (Version 1)
Quarter: 2022Q4

REPORT INFORMATION
  Report Type: Report from Study
  Country: CA (occurrence: CA)
  Receive Date: 20221220
  Receipt Date: 20221220
  Transmission Date: 20230112
  Serious: Yes (Hospitalization)
  Sender: FDA-Public Use
  Company Number: CA-HLS-202000498

PATIENT
  Sex: Female

DRUGS (17)
  1. DEPO-PROVERA [Concomitant]
     Active Substance: MEDROXYPROGESTERONE ACETATE
     Route: 030
  2. INDERAL [Concomitant]
     Active Substance: PROPRANOLOL HYDROCHLORIDE
     Dosage: 24-APR-2020: 20 MG TWICE DAILY
     Route: 048
  3. EPIVAL [Concomitant]
     Active Substance: DIVALPROEX SODIUM
     Dosage: AT NIGHT 24-APR-2020 500 MG TWICE DAILY
     Route: 048
  4. CLOZARIL [Suspect]
     Active Substance: CLOZAPINE
     Dosage: 03-JUL-2015 200 MG AT NIGHT?20-JUL-2015 200 MG AT NIGHT AND 50 MG MORNING?05-JUL-2016 250 MG AT NIGH
     Route: 048
     Dates: start: 20150616
  5. RESTORIL [Concomitant]
     Active Substance: TEMAZEPAM
     Dosage: AT BEDTIME
     Route: 048
  6. PAXIL [Concomitant]
     Active Substance: PAROXETINE HYDROCHLORIDE
     Dosage: AT BEDTIME
     Route: 048
  7. LEVOMEPROMAZINE [Concomitant]
     Active Substance: LEVOMEPROMAZINE
     Dosage: AT BEDTIME
     Route: 048
  8. ANAFRANIL [Concomitant]
     Active Substance: CLOMIPRAMINE HYDROCHLORIDE
     Dosage: AT BEDTIME
     Route: 048
  9. DILANTIN [Concomitant]
     Active Substance: PHENYTOIN
     Dosage: AT BEDTIME
     Route: 048
  10. LITHIUM CARBONATE [Concomitant]
     Active Substance: LITHIUM CARBONATE
     Dosage: AT NIGHT 24-APR-2020 600 MG AT BEDTIME
     Route: 048
  11. RIVOTRIL [Concomitant]
     Active Substance: CLONAZEPAM
     Dosage: AT NIGHT 06-JUL-2017 3 MG AT NIGHT INCREASED TO TWICE DAILY IN JAN-2020 ?24-APR-2020 0.5 MG AM AND 0
     Route: 048
  12. VITAMIN C [Concomitant]
     Active Substance: ASCORBIC ACID
     Route: 065
  13. MELATONIN [Concomitant]
     Active Substance: MELATONIN
     Dosage: 3MG AT HS
     Route: 060
  14. RISPERDAL [Concomitant]
     Active Substance: RISPERIDONE
     Dosage: 1 MG BID
     Route: 065
  15. HALDOL [Concomitant]
     Active Substance: HALOPERIDOL
     Route: 065
  16. COGENTIN [Concomitant]
     Active Substance: BENZTROPINE MESYLATE
     Dosage: 2 MG MORNING AND AT NIGHT
     Route: 065
  17. CHLORPROMAZINE [Concomitant]
     Active Substance: CHLORPROMAZINE
     Dosage: AT NIGHT
     Route: 065

REACTIONS (34)
  - Anger [Unknown]
  - Anxiety [Unknown]
  - Abnormal behaviour [Unknown]
  - Condition aggravated [Unknown]
  - Mental impairment [Unknown]
  - Excessive eye blinking [Unknown]
  - Excessive eye blinking [Unknown]
  - Communication disorder [Unknown]
  - Defiant behaviour [Unknown]
  - Behaviour disorder [Unknown]
  - Emotional distress [Unknown]
  - Polydipsia [Unknown]
  - Distractibility [Unknown]
  - Eating disorder [Unknown]
  - Tic [Unknown]
  - Fall [Unknown]
  - Flat affect [Unknown]
  - Generalised tonic-clonic seizure [Unknown]
  - Psychomotor hyperactivity [Unknown]
  - Impulsive behaviour [Unknown]
  - Anosognosia [Unknown]
  - Irritability [Unknown]
  - Language disorder [Unknown]
  - Mood altered [Unknown]
  - Mutism [Unknown]
  - Obsessive-compulsive disorder [Unknown]
  - Regurgitation [Unknown]
  - Repetitive speech [Unknown]
  - Stereotypy [Unknown]
  - Restlessness [Unknown]
  - Eye movement disorder [Unknown]
  - Adverse drug reaction [Unknown]
  - Insomnia [Unknown]
  - Tremor [Unknown]
